FAERS Safety Report 5069597-5 (Version None)
Quarter: 2006Q3

REPORT INFORMATION
  Report Type: 
  Country: None (occurrence: None)
  Receive Date: 20060714
  Receipt Date: 20060317
  Transmission Date: 20061208
  Serious: No
  Sender: FDA-Public Use
  Company Number: 2006SP001312

PATIENT
  Age: 51 Year
  Sex: Female
  Weight: 63.5036 kg

DRUGS (4)
  1. LUNESTA [Suspect]
     Indication: INSOMNIA
     Dosage: 3 MG;HS;ORAL
     Route: 048
     Dates: start: 20060313
  2. CELEXA [Concomitant]
  3. BUSPIRONE HCL [Concomitant]
  4. TRAZODONE HCL [Concomitant]

REACTIONS (3)
  - FATIGUE [None]
  - MIDDLE INSOMNIA [None]
  - SOMNOLENCE [None]
